FAERS Safety Report 5571070-2 (Version None)
Quarter: 2007Q4

REPORT INFORMATION
  Report Type: 
  Country: None (occurrence: None)
  Receive Date: 20071221
  Receipt Date: 20071212
  Transmission Date: 20080405
  Serious: Yes (Hospitalization)
  Sender: FDA-Public Use
  Company Number: JP-ASTRAZENECA-2007AP07972

PATIENT
  Age: 60 Year
  Sex: Female

DRUGS (4)
  1. IRESSA [Suspect]
     Indication: NON-SMALL CELL LUNG CANCER
     Route: 048
     Dates: start: 20020701, end: 20051001
  2. UFT [Suspect]
     Route: 048
     Dates: start: 19990101, end: 20020101
  3. CISPLATIN [Suspect]
     Dosage: DOSE UNKNOWN
     Route: 041
     Dates: start: 20051101, end: 20060201
  4. TAXOTERE [Suspect]
     Dosage: DOSE UNKNOWN
     Route: 041
     Dates: start: 20051101, end: 20060201

REACTIONS (1)
  - LEUKAEMIA [None]
